FAERS Safety Report 5339397-7 (Version None)
Quarter: 2007Q2

REPORT INFORMATION
  Report Type: 
  Country: None (occurrence: None)
  Receive Date: 20070322
  Receipt Date: 20061106
  Transmission Date: 20071010
  Serious: Yes (Hospitalization)
  Sender: FDA-Public Use
  Company Number: 200614019BCC

PATIENT
  Age: 74 Year
  Sex: Female
  Weight: 77.1115 kg

DRUGS (2)
  1. ALEVE [Suspect]
     Indication: DRUG USE FOR UNKNOWN INDICATION
     Dosage: 440 MG, ONCE, ORAL
     Route: 048
     Dates: start: 20050101
  2. PLENDIL [Concomitant]

REACTIONS (4)
  - COLD SWEAT [None]
  - DYSPNOEA [None]
  - HYPERSENSITIVITY [None]
  - TREMOR [None]
